FAERS Safety Report 21166746 (Version 1)
Quarter: 2022Q3

REPORT INFORMATION
  Report Type: Spontaneous
  Country: US (occurrence: None)
  Receive Date: 20220802
  Receipt Date: 20220802
  Transmission Date: 20221026
  Serious: Yes (Hospitalization)
  Sender: FDA-Public Use
  Company Number: None

PATIENT
  Sex: Female
  Weight: 84.82 kg

DRUGS (13)
  1. EVEROLIMUS [Suspect]
     Active Substance: EVEROLIMUS
     Indication: Breast cancer female
     Dosage: FREQUENCY : DAILY;?
     Route: 048
  2. CALCIUM 600 [Concomitant]
  3. CARAFATE [Concomitant]
  4. COLACE [Concomitant]
     Active Substance: DOCUSATE SODIUM
  5. EXEMESTANE [Concomitant]
  6. HYDROCORTISONE [Concomitant]
  7. MYRBETRIQ [Concomitant]
     Active Substance: MIRABEGRON
  8. PREDNISONE [Concomitant]
  9. PROCHLORPERAZINE [Concomitant]
  10. PROTONIX [Concomitant]
  11. SUDAFED [Concomitant]
  12. TORSEMIDE [Concomitant]
  13. VITAMIN C [Concomitant]

REACTIONS (1)
  - Malaise [None]
